FAERS Safety Report 16456040 (Version 1)
Quarter: 2019Q2

REPORT INFORMATION
  Report Type: Report from Study
  Country: AU (occurrence: AU)
  Receive Date: 20190620
  Receipt Date: 20190620
  Transmission Date: 20190711
  Serious: Yes (Hospitalization)
  Sender: FDA-Public Use
  Company Number: AU-GLAXOSMITHKLINE-AU2019GSK108914

PATIENT
  Sex: Female
  Weight: 83 kg

DRUGS (4)
  1. INFLUENZA VACCINE [Suspect]
     Active Substance: INFLUENZA VIRUS VACCINE
     Indication: PROPHYLAXIS
     Route: 065
  2. VENTOLIN [Suspect]
     Active Substance: ALBUTEROL SULFATE
     Indication: CHRONIC OBSTRUCTIVE PULMONARY DISEASE
     Dosage: 100 UG, UNK
     Route: 055
  3. PNEUMOCOCCAL VACCINE POLYVALENT NOS [Concomitant]
     Active Substance: PNEUMOCOCCAL VACCINE POLYVALENT
     Indication: PROPHYLAXIS
  4. FLUTICASONE FUROATE + VILANTEROL TRIFENATATE [Suspect]
     Active Substance: FLUTICASONE FUROATE\VILANTEROL TRIFENATATE
     Indication: CHRONIC OBSTRUCTIVE PULMONARY DISEASE
     Dosage: UNK (100/25-200/25)

REACTIONS (1)
  - Chronic obstructive pulmonary disease [Unknown]
